FAERS Safety Report 13789646 (Version 1)
Quarter: 2017Q3

REPORT INFORMATION
  Report Type: Spontaneous
  Country: US (occurrence: US)
  Receive Date: 20170725
  Receipt Date: 20170725
  Transmission Date: 20171127
  Serious: No
  Sender: FDA-Public Use
  Company Number: US-UNITED THERAPEUTICS-UNT-2017-001542

PATIENT
  Age: 70 Year
  Sex: Female
  Weight: 42.18 kg

DRUGS (3)
  1. AMLODIPINE [Concomitant]
     Active Substance: AMLODIPINE BESYLATE
     Indication: PRODUCT USED FOR UNKNOWN INDICATION
  2. REMODULIN [Suspect]
     Active Substance: TREPROSTINIL
     Indication: PULMONARY HYPERTENSION
     Dosage: 0.0525 ?G/KG, CONTINUING
     Route: 041
     Dates: start: 20151209, end: 201703
  3. COUMADIN [Concomitant]
     Active Substance: WARFARIN SODIUM
     Indication: PRODUCT USED FOR UNKNOWN INDICATION

REACTIONS (4)
  - Pulmonary arterial hypertension [Unknown]
  - Scleroderma [Unknown]
  - General physical health deterioration [Unknown]
  - Right ventricular failure [Unknown]

NARRATIVE: CASE EVENT DATE: 201703
